FAERS Safety Report 4477385-3 (Version None)
Quarter: 2004Q4

REPORT INFORMATION
  Report Type: 
  Country: None (occurrence: None)
  Receive Date: 20041013
  Receipt Date: 20040930
  Transmission Date: 20050328
  Serious: Yes (Disabling)
  Sender: FDA-Public Use
  Company Number: 2004073227

PATIENT
  Sex: Female

DRUGS (3)
  1. RELPAX [Suspect]
     Indication: MIGRAINE
     Dosage: (40 MG)
     Dates: start: 20030901, end: 20040701
  2. GESTODENE (GESTODENE) [Suspect]
     Indication: ILL-DEFINED DISORDER
  3. ETHINYL ESTRADIOL TAB [Suspect]
     Indication: ILL-DEFINED DISORDER

REACTIONS (3)
  - HEMIANOPIA [None]
  - ISCHAEMIC STROKE [None]
  - MIGRAINE [None]
